FAERS Safety Report 19585870 (Version 5)
Quarter: 2021Q3

REPORT INFORMATION
  Report Type: Report from Study
  Country: US (occurrence: US)
  Receive Date: 20210720
  Receipt Date: 20210925
  Transmission Date: 20211014
  Serious: Yes (Other)
  Sender: FDA-Public Use
  Company Number: NVSC2021US156056

PATIENT
  Sex: Male

DRUGS (4)
  1. ENTRESTO [Suspect]
     Active Substance: SACUBITRIL\VALSARTAN
     Dosage: UNK
     Route: 065
  2. ENTRESTO [Suspect]
     Active Substance: SACUBITRIL\VALSARTAN
     Indication: PRODUCT USED FOR UNKNOWN INDICATION
     Dosage: UNK
     Route: 065
  3. ENTRESTO [Suspect]
     Active Substance: SACUBITRIL\VALSARTAN
     Route: 065
  4. FLUOROURACIL. [Concomitant]
     Active Substance: FLUOROURACIL
     Indication: PRODUCT USED FOR UNKNOWN INDICATION
     Dosage: UNK (USING CHEMOTHERAPY CREAM)
     Route: 065

REACTIONS (13)
  - Back pain [Unknown]
  - Diarrhoea [Not Recovered/Not Resolved]
  - Throat clearing [Unknown]
  - Cough [Recovered/Resolved]
  - Renal impairment [Unknown]
  - Hernia [Unknown]
  - Product dose omission issue [Unknown]
  - Fall [Unknown]
  - Peripheral swelling [Recovered/Resolved]
  - Peripheral swelling [Recovering/Resolving]
  - Flatulence [Unknown]
  - Thyroid function test abnormal [Unknown]
  - Weight decreased [Unknown]
